FAERS Safety Report 5465469-2 (Version None)
Quarter: 2007Q3

REPORT INFORMATION
  Report Type: 
  Country: None (occurrence: None)
  Receive Date: 20070920
  Receipt Date: 20070920
  Transmission Date: 20080115
  Serious: Yes (Other)
  Sender: FDA-Public Use
  Company Number: None

PATIENT
  Age: 31 Year
  Sex: Female
  Weight: 83.9154 kg

DRUGS (2)
  1. ACETAMINOPHEN AND HYDROCODONE BITARTRATE [Suspect]
     Indication: ABDOMINAL PAIN
     Dosage: 21 1-2 EVERY 4HRS AS PO
     Route: 048
     Dates: start: 20070824, end: 20070918
  2. LORTAB [Suspect]

REACTIONS (13)
  - ABDOMINAL PAIN UPPER [None]
  - CHEST PAIN [None]
  - DIZZINESS [None]
  - DRUG INEFFECTIVE [None]
  - DYSPNOEA [None]
  - DYSURIA [None]
  - HEART RATE INCREASED [None]
  - HYPERSENSITIVITY [None]
  - PAIN [None]
  - PHARMACEUTICAL PRODUCT COMPLAINT [None]
  - SOMNOLENCE [None]
  - STOMACH DISCOMFORT [None]
  - VOMITING [None]
